FAERS Safety Report 18563778 (Version 1)
Quarter: 2020Q4

REPORT INFORMATION
  Report Type: Spontaneous
  Country: US (occurrence: US)
  Receive Date: 20201128
  Receipt Date: 20201128
  Transmission Date: 20210114
  Serious: No
  Sender: FDA-Public Use
  Company Number: None

PATIENT
  Age: 42 Year
  Sex: Male

DRUGS (1)
  1. SUTENT [Suspect]
     Active Substance: SUNITINIB MALATE
     Route: 048
     Dates: start: 202007

REACTIONS (4)
  - Therapy change [None]
  - Platelet count decreased [None]
  - Dehydration [None]
  - Neuralgia [None]

NARRATIVE: CASE EVENT DATE: 20201001
